FAERS Safety Report 13867939 (Version 1)
Quarter: 2017Q3

REPORT INFORMATION
  Report Type: Report from Study
  Country: MX (occurrence: MX)
  Receive Date: 20170814
  Receipt Date: 20170814
  Transmission Date: 20171127
  Serious: Yes (Other)
  Sender: FDA-Public Use
  Company Number: MX-GILEAD-2017-0287831

PATIENT
  Age: 46 Year
  Sex: Female

DRUGS (2)
  1. EFAVIRENZ [Suspect]
     Active Substance: EFAVIRENZ
     Indication: PRODUCT USED FOR UNKNOWN INDICATION
     Dosage: UNK
     Route: 065
     Dates: start: 201704
  2. EMTRICITABINE/TENOFOVIR DISOPROXIL FUMARATE [Suspect]
     Active Substance: EMTRICITABINE\TENOFOVIR DISOPROXIL FUMARATE
     Indication: PRODUCT USED FOR UNKNOWN INDICATION
     Dosage: UNK
     Route: 065
     Dates: start: 201704

REACTIONS (3)
  - Depression [Unknown]
  - Suicide attempt [Unknown]
  - Anxiety [Unknown]

NARRATIVE: CASE EVENT DATE: 2017
